FAERS Safety Report 25961004 (Version 1)
Quarter: 2025Q4

REPORT INFORMATION
  Report Type: Spontaneous
  Country: US (occurrence: US)
  Receive Date: 20251027
  Receipt Date: 20251027
  Transmission Date: 20260118
  Serious: No
  Sender: ROCHE
  Company Number: US-ROCHE-10000412712

PATIENT
  Sex: Female

DRUGS (1)
  1. XOLAIR [Suspect]
     Active Substance: OMALIZUMAB
     Indication: Asthma
     Dosage: FORM STRENGTH: 300MG/2ML
     Route: 058
     Dates: start: 202412

REACTIONS (9)
  - Off label use [Unknown]
  - Tachycardia [Unknown]
  - Hypertension [Unknown]
  - Vertigo [Unknown]
  - Confusional state [Unknown]
  - Dysphonia [Unknown]
  - Pruritus [Unknown]
  - Abdominal pain [Unknown]
  - Diarrhoea [Unknown]
